FAERS Safety Report 23318233 (Version 4)
Quarter: 2024Q2

REPORT INFORMATION
  Report Type: Report from Study
  Country: US (occurrence: US)
  Receive Date: 20231220
  Receipt Date: 20240411
  Transmission Date: 20240716
  Serious: Yes (Other)
  Sender: FDA-Public Use
  Company Number: US-ABBVIE-5547636

PATIENT
  Age: 66 Year
  Sex: Female

DRUGS (3)
  1. RINVOQ [Suspect]
     Active Substance: UPADACITINIB
     Indication: Rheumatoid arthritis
     Route: 048
     Dates: start: 20210319
  2. RINVOQ [Suspect]
     Active Substance: UPADACITINIB
     Indication: Rheumatoid arthritis
     Route: 048
     Dates: start: 20220103
  3. RINVOQ [Suspect]
     Active Substance: UPADACITINIB
     Indication: Rheumatoid arthritis
     Route: 048

REACTIONS (17)
  - Knee arthroplasty [Unknown]
  - Seasonal allergy [Not Recovered/Not Resolved]
  - Hepatic enzyme increased [Recovered/Resolved]
  - Lymphoedema [Not Recovered/Not Resolved]
  - Inflammation [Not Recovered/Not Resolved]
  - Cardiovascular disorder [Unknown]
  - Musculoskeletal stiffness [Unknown]
  - Joint lock [Unknown]
  - Arthralgia [Unknown]
  - Musculoskeletal stiffness [Unknown]
  - Headache [Unknown]
  - Hepatic steatosis [Unknown]
  - Stress [Unknown]
  - Pain [Unknown]
  - Sneezing [Unknown]
  - Rhinorrhoea [Unknown]
  - Pneumonia [Unknown]

NARRATIVE: CASE EVENT DATE: 20240404
